FAERS Safety Report 6218019-7 (Version None)
Quarter: 2009Q2

REPORT INFORMATION
  Report Type: 
  Country: None (occurrence: None)
  Receive Date: 20090608
  Receipt Date: 20090601
  Transmission Date: 20091009
  Serious: Yes (Hospitalization, Other)
  Sender: FDA-Public Use
  Company Number: US-BAYER-200920541NA

PATIENT
  Age: 67 Year
  Sex: Female
  Weight: 64 kg

DRUGS (11)
  1. CIPROFLOXACIN HYDROCHLORIDE [Suspect]
     Indication: URINARY TRACT INFECTION
     Dosage: 1 TABLET TWICE DAILY
  2. HYDROCHLOROTHIAZIDE [Interacting]
     Indication: DRUG USE FOR UNKNOWN INDICATION
  3. DYAZIDE [Concomitant]
     Dosage: THREE DAYS A WEEK
  4. LIPITOR [Concomitant]
  5. PENICILLIN [Concomitant]
     Dosage: FOR DENTAL WORK
  6. PULMICORT-100 [Concomitant]
     Route: 055
  7. VALIUM [Concomitant]
  8. DARVOCET [Concomitant]
  9. TOPROL-XL [Concomitant]
     Indication: VENTRICULAR EXTRASYSTOLES
  10. POTASSIUM CHLORIDE [Concomitant]
     Dosage: TOTAL DAILY DOSE: 10 MEQ
  11. POTASSIUM CHLORIDE [Concomitant]
     Dosage: UPPED TO 2, THEN UPPED TO 4
     Dates: start: 20080901

REACTIONS (5)
  - ANXIETY [None]
  - BLOOD POTASSIUM DECREASED [None]
  - BLOOD THYROID STIMULATING HORMONE DECREASED [None]
  - MUSCULOSKELETAL PAIN [None]
  - VENTRICULAR EXTRASYSTOLES [None]
